FAERS Safety Report 7676437-4 (Version None)
Quarter: 2011Q3

REPORT INFORMATION
  Report Type: 
  Country: None (occurrence: None)
  Receive Date: 20110809
  Receipt Date: 20110809
  Transmission Date: 20111222
  Serious: Yes (Other)
  Sender: FDA-Public Use
  Company Number: None

PATIENT
  Sex: Female
  Weight: 81.6475 kg

DRUGS (3)
  1. MESALAMINE [Suspect]
     Indication: COLITIS
     Dosage: 800 MG TWICE A DAY MOUTH
     Route: 048
     Dates: start: 20110301
  2. MESALAMINE [Suspect]
     Indication: COLITIS
     Dosage: 800 MG TWICE A DAY MOUTH
     Route: 048
     Dates: start: 20110401
  3. MESALAMINE [Suspect]
     Indication: COLITIS
     Dosage: 800 MG TWICE A DAY MOUTH
     Route: 048
     Dates: start: 20110501

REACTIONS (1)
  - DRUG INEFFECTIVE [None]
